FAERS Safety Report 8599233-2 (Version None)
Quarter: 2012Q3

REPORT INFORMATION
  Report Type: 
  Country: None (occurrence: None)
  Receive Date: 20120816
  Receipt Date: 20111210
  Transmission Date: 20120928
  Serious: No
  Sender: FDA-Public Use
  Company Number: US-AMGEN-USASP2011055828

PATIENT
  Age: 53 Year
  Sex: Male

DRUGS (3)
  1. NEUPOGEN [Suspect]
     Indication: HEPATITIS C
     Dosage: 480 MUG, Q3WK
     Dates: start: 20111001
  2. INSULIN [Concomitant]
     Dosage: UNK
  3. PEG-INTRON [Concomitant]
     Indication: HEPATITIS C
     Dosage: UNK

REACTIONS (2)
  - INJECTION SITE HAEMORRHAGE [None]
  - INJECTION SITE PAIN [None]
